FAERS Safety Report 10100655 (Version 1)
Quarter: 2014Q2

REPORT INFORMATION
  Report Type: Report from Study
  Country: DE (occurrence: TR)
  Receive Date: 20140423
  Receipt Date: 20140423
  Transmission Date: 20141212
  Serious: Yes (Death)
  Sender: FDA-Public Use
  Company Number: DE-ACTELION-A-US2014-97968

PATIENT
  Age: 50 Year
  Sex: Female

DRUGS (7)
  1. VENTAVIS [Suspect]
     Indication: PULMONARY ARTERIAL HYPERTENSION
     Dosage: UNK, 6 X 1
     Route: 055
     Dates: start: 20130812
  2. BOSENTAN [Concomitant]
     Indication: PULMONARY ARTERIAL HYPERTENSION
     Route: 048
  3. ALDACTONE [Concomitant]
  4. DIGOXIN [Concomitant]
  5. EUTHYROX [Concomitant]
  6. PANTOPRAZOLE [Concomitant]
  7. ALLOPURINOL [Concomitant]

REACTIONS (2)
  - Death [Fatal]
  - Off label use [Unknown]
